FAERS Safety Report 9856972 (Version 1)
Quarter: 2014Q1

REPORT INFORMATION
  Report Type: Spontaneous
  Country: ES (occurrence: ES)
  Receive Date: 20140130
  Receipt Date: 20140130
  Transmission Date: 20141002
  Serious: No
  Sender: FDA-Public Use
  Company Number: PHHY2014ES010661

PATIENT
  Age: 22 Year
  Sex: Female

DRUGS (1)
  1. PARACETAMOL [Suspect]

REACTIONS (1)
  - Epistaxis [Unknown]
